FAERS Safety Report 26059355 (Version 1)
Quarter: 2025Q4

REPORT INFORMATION
  Report Type: Spontaneous
  Country: US (occurrence: None)
  Receive Date: 20251117
  Receipt Date: 20251117
  Transmission Date: 20260119
  Serious: Yes (Other)
  Sender: FDA-CTU
  Company Number: None

PATIENT
  Sex: Male

DRUGS (4)
  1. NILOTINIB [Suspect]
     Active Substance: NILOTINIB
     Indication: Philadelphia positive chronic myeloid leukaemia
     Dosage: TAKE 1 CAPSULE BY MOUTH TWICE DAILY ON AN EMPTY STOMACH. AVOID FOODS FOR 2 HOURS BEFORE AND 1 HOUR AFTER?TAKING THE DOSE. AVOID GRAPEFRUIT PRODUCTS. SWALLOW WHOLE
     Dates: start: 20250708
  2. IRON DEXTRAN [Suspect]
     Active Substance: IRON DEXTRAN
     Dosage: FREQUENCY : DAILY;?
     Route: 048
  3. IRON SUCROSE INJ 200/10ML [Concomitant]
  4. PANTOPRAZOLE TAB 40MG [Concomitant]

REACTIONS (2)
  - Gastrointestinal haemorrhage [None]
  - Serum ferritin decreased [None]
